FAERS Safety Report 20453176 (Version 2)
Quarter: 2022Q1

REPORT INFORMATION
  Report Type: Spontaneous
  Country: US (occurrence: US)
  Receive Date: 20220210
  Receipt Date: 20220217
  Transmission Date: 20220423
  Serious: No
  Sender: FDA-Public Use
  Company Number: US-GLAXOSMITHKLINE-USCH2022005426

PATIENT
  Age: 22 Year
  Sex: Male

DRUGS (1)
  1. NICORETTE [Suspect]
     Active Substance: NICOTINE
     Indication: Tobacco user
     Dosage: UNK

REACTIONS (2)
  - Throat irritation [Recovered/Resolved]
  - Discomfort [Recovered/Resolved]
